FAERS Safety Report 8428616-6 (Version None)
Quarter: 2012Q2

REPORT INFORMATION
  Report Type: 
  Country: None (occurrence: None)
  Receive Date: 20120612
  Receipt Date: 20120601
  Transmission Date: 20120825
  Serious: Yes (Hospitalization)
  Sender: FDA-Public Use
  Company Number: US-ELI_LILLY_AND_COMPANY-US201206001382

PATIENT
  Sex: Male

DRUGS (2)
  1. HUMALOG MIX 75/25 [Suspect]
     Indication: DIABETES MELLITUS
     Dosage: 40 IU, TID
     Dates: start: 20000101
  2. HUMALOG MIX 75/25 [Suspect]
     Dosage: 40 IU, TID
     Dates: end: 20120429

REACTIONS (1)
  - PULMONARY HYPERTENSION [None]
